FAERS Safety Report 5200918-6 (Version None)
Quarter: 2007Q1

REPORT INFORMATION
  Report Type: 
  Country: None (occurrence: None)
  Receive Date: 20070108
  Receipt Date: 19980215
  Transmission Date: 20070707
  Serious: Yes (Death)
  Sender: FDA-Public Use
  Company Number: DE-BRISTOL-MYERS SQUIBB COMPANY-13630967

PATIENT
  Age: 60 Year
  Sex: Female

DRUGS (2)
  1. TAXOL [Suspect]
     Indication: BREAST CANCER METASTATIC
     Route: 042
     Dates: start: 19951101, end: 19951101
  2. FARMORUBICIN [Suspect]
     Indication: BREAST CANCER METASTATIC
     Dates: start: 19951101, end: 19951101

REACTIONS (1)
  - DEATH [None]
